FAERS Safety Report 7111462-3 (Version None)
Quarter: 2010Q4

REPORT INFORMATION
  Report Type: 
  Country: None (occurrence: None)
  Receive Date: 20101118
  Receipt Date: 20100317
  Transmission Date: 20110411
  Serious: No
  Sender: FDA-Public Use
  Company Number: US-PFIZER INC-2010033319

PATIENT
  Sex: Female
  Weight: 85.3 kg

DRUGS (6)
  1. ZYVOX [Suspect]
     Indication: CELLULITIS
     Dosage: UNKNOWN DOSE TWO TIMES A DAY
     Dates: start: 20100201, end: 20100201
  2. ATACAND [Concomitant]
     Dosage: UNK
  3. PREDNISOLONE [Concomitant]
     Dosage: UNK
  4. DOPAMINE [Concomitant]
     Dosage: UNK
  5. GABAPENTIN [Concomitant]
     Dosage: UNK
  6. FISH OIL [Concomitant]
     Dosage: UNK

REACTIONS (1)
  - DYSGEUSIA [None]
